FAERS Safety Report 10283399 (Version 1)
Quarter: 2014Q3

REPORT INFORMATION
  Report Type: Spontaneous
  Country: US (occurrence: None)
  Receive Date: 20140702
  Receipt Date: 20140702
  Transmission Date: 20150326
  Serious: No
  Sender: FDA-Public Use
  Company Number: None

PATIENT
  Age: 54 Year
  Sex: Female

DRUGS (11)
  1. XELODA [Suspect]
     Active Substance: CAPECITABINE
     Route: 048
     Dates: start: 20130312, end: 20140325
  2. PROCHLORERAZINE [Concomitant]
  3. AMOXICILLIN. [Concomitant]
     Active Substance: AMOXICILLIN
  4. MULTIVITAMIN [Concomitant]
     Active Substance: VITAMINS
  5. CAPECITABINE [Suspect]
     Active Substance: CAPECITABINE
     Indication: BREAST CANCER FEMALE
     Route: 048
     Dates: start: 20140326
  6. OXYCODONE [Concomitant]
     Active Substance: OXYCODONE
  7. LORATADINE. [Concomitant]
     Active Substance: LORATADINE
  8. PROMETHAZINE [Concomitant]
     Active Substance: PROMETHAZINE\PROMETHAZINE HYDROCHLORIDE
  9. MELOXICAM. [Concomitant]
     Active Substance: MELOXICAM
  10. ANASPAZ [Concomitant]
     Active Substance: HYOSCYAMINE
  11. PANTOPRAZOLE [Concomitant]
     Active Substance: PANTOPRAZOLE SODIUM

REACTIONS (1)
  - Diarrhoea [None]

NARRATIVE: CASE EVENT DATE: 20140630
